FAERS Safety Report 8507704-X (Version None)
Quarter: 2012Q3

REPORT INFORMATION
  Report Type: 
  Country: None (occurrence: None)
  Receive Date: 20120713
  Receipt Date: 20120710
  Transmission Date: 20120928
  Serious: Yes (Other)
  Sender: FDA-Public Use
  Company Number: US-AMGEN-USASP2012042840

PATIENT
  Age: 73 Year
  Sex: Female

DRUGS (3)
  1. ENBREL [Suspect]
     Indication: RHEUMATOID ARTHRITIS
     Dosage: 50 MG, QWK
     Dates: start: 19990101
  2. ACTEMRA [Concomitant]
     Dosage: UNK
  3. ORENCIA [Concomitant]
     Dosage: UNK

REACTIONS (10)
  - BACK PAIN [None]
  - PAIN [None]
  - HYPOAESTHESIA [None]
  - MUSCULAR WEAKNESS [None]
  - ARTHRALGIA [None]
  - BALANCE DISORDER [None]
  - BURNING SENSATION [None]
  - FALL [None]
  - LOWER LIMB FRACTURE [None]
  - PARAESTHESIA [None]
